FAERS Safety Report 10063444 (Version 1)
Quarter: 2014Q2

REPORT INFORMATION
  Report Type: Spontaneous
  Country: US (occurrence: US)
  Receive Date: 20140407
  Receipt Date: 20140407
  Transmission Date: 20141212
  Serious: Yes (Other)
  Sender: FDA-Public Use
  Company Number: US-FRI-1000066082

PATIENT
  Sex: Female

DRUGS (2)
  1. LEXAPRO [Suspect]
     Indication: DEPRESSION
     Dates: start: 201101
  2. LEXAPRO [Suspect]
     Indication: ANXIETY

REACTIONS (5)
  - Physical assault [Recovered/Resolved]
  - Abnormal behaviour [Unknown]
  - Dissociative disorder [Unknown]
  - Aggression [Unknown]
  - Feeling abnormal [Unknown]
